FAERS Safety Report 8998128 (Version 1)
Quarter: 2013Q1

REPORT INFORMATION
  Report Type: Spontaneous
  Country: CN (occurrence: CN)
  Receive Date: 20130104
  Receipt Date: 20130104
  Transmission Date: 20140127
  Serious: Yes (Other)
  Sender: FDA-Public Use
  Company Number: CN-GILEAD-2013-0067233

PATIENT
  Age: 64 Year
  Sex: Female

DRUGS (3)
  1. VIREAD [Suspect]
     Indication: HIV INFECTION
     Dosage: 0.3 G, QD
     Route: 048
     Dates: start: 20120216, end: 20120306
  2. EPIVIR [Concomitant]
     Indication: HIV INFECTION
     Dosage: 300 MG, QD
     Route: 048
     Dates: start: 201203, end: 20120430
  3. ALUVIA [Concomitant]
     Indication: HIV INFECTION
     Dosage: 1 DF, BID
     Route: 048
     Dates: start: 20120216, end: 20120430

REACTIONS (1)
  - Renal disorder [Not Recovered/Not Resolved]
